FAERS Safety Report 8626007-6 (Version None)
Quarter: 2012Q3

REPORT INFORMATION
  Report Type: 
  Country: None (occurrence: None)
  Receive Date: 20120827
  Receipt Date: 20120814
  Transmission Date: 20120928
  Serious: Yes (Other)
  Sender: FDA-Public Use
  Company Number: US-ROCHE-1104319

PATIENT
  Age: 64 Year
  Sex: Female

DRUGS (3)
  1. ATORVASTATIN [Concomitant]
  2. ALENDRONATE SODIUM [Concomitant]
  3. LUCENTIS [Suspect]
     Indication: AGE-RELATED MACULAR DEGENERATION
     Dosage: 3 TO 5 WEEKS FOR 3 YEARS
     Route: 050

REACTIONS (7)
  - MACULAR PIGMENTATION [None]
  - SUBRETINAL FIBROSIS [None]
  - RETINAL OEDEMA [None]
  - RETINAL EXUDATES [None]
  - CHOROIDAL NEOVASCULARISATION [None]
  - RETINAL PIGMENT EPITHELIAL TEAR [None]
  - DETACHMENT OF RETINAL PIGMENT EPITHELIUM [None]
